FAERS Safety Report 7984646-X (Version None)
Quarter: 2011Q4

REPORT INFORMATION
  Report Type: 
  Country: None (occurrence: None)
  Receive Date: 20111214
  Receipt Date: 20111130
  Transmission Date: 20120403
  Serious: Yes (Hospitalization, Other)
  Sender: FDA-Public Use
  Company Number: 20110833

PATIENT
  Age: 42 Year
  Sex: Female

DRUGS (1)
  1. LIDOCAINE HYDROCHLORIDE [Suspect]

REACTIONS (7)
  - ABSCESS NECK [None]
  - ABSCESS [None]
  - INFECTION [None]
  - NECK PAIN [None]
  - BACK PAIN [None]
  - PRODUCT QUALITY ISSUE [None]
  - SUBCUTANEOUS ABSCESS [None]
